FAERS Safety Report 5245006-8 (Version None)
Quarter: 2007Q1

REPORT INFORMATION
  Report Type: 
  Country: None (occurrence: None)
  Receive Date: 20070221
  Receipt Date: 20070221
  Transmission Date: 20070707
  Serious: No
  Sender: FDA-Public Use
  Company Number: None

PATIENT
  Age: 43 Year
  Sex: Female
  Weight: 95.2554 kg

DRUGS (1)
  1. ZICAM  MATRIXX [Suspect]
     Indication: NASOPHARYNGITIS
     Dosage: 1 NASAL SPRAY UP NOSE  USED ONCE
     Route: 045
     Dates: start: 20050912, end: 20050912

REACTIONS (3)
  - AGEUSIA [None]
  - ANOSMIA [None]
  - NASAL DISCOMFORT [None]
